FAERS Safety Report 24439851 (Version 1)
Quarter: 2024Q4

REPORT INFORMATION
  Report Type: Spontaneous
  Country: US (occurrence: US)
  Receive Date: 20241015
  Receipt Date: 20241015
  Transmission Date: 20250114
  Serious: No
  Sender: AMGEN
  Company Number: US-AMGEN-USASP2024203269

PATIENT
  Sex: Female

DRUGS (3)
  1. PREDNISONE [Suspect]
     Active Substance: PREDNISONE
     Indication: Giant cell arteritis
     Dosage: 10 MILLIGRAM, QD
     Route: 065
  2. SIRUKUMAB [Concomitant]
     Active Substance: SIRUKUMAB
     Indication: Giant cell arteritis
     Dosage: 50 MILLIGRAM, Q4WK
     Route: 058
  3. BARICITINIB [Concomitant]
     Active Substance: BARICITINIB
     Indication: Giant cell arteritis
     Dosage: 4 MILLIGRAM, QD
     Route: 065

REACTIONS (2)
  - Adverse event [Unknown]
  - Giant cell arteritis [Unknown]
